FAERS Safety Report 21209891 (Version 3)
Quarter: 2022Q3

REPORT INFORMATION
  Report Type: Spontaneous
  Country: US (occurrence: US)
  Receive Date: 20220813
  Receipt Date: 20220823
  Transmission Date: 20221027
  Serious: Yes (Other)
  Sender: FDA-Public Use
  Company Number: US-NOVARTISTESTPH-NVSC2022US183789

PATIENT
  Age: 53 Year
  Sex: Female

DRUGS (2)
  1. LETROZOLE [Suspect]
     Active Substance: LETROZOLE
     Indication: Product used for unknown indication
     Dosage: UNK
     Route: 065
     Dates: start: 20150813
  2. IBRANCE [Suspect]
     Active Substance: PALBOCICLIB
     Indication: Breast cancer metastatic
     Dosage: 75 MG
     Route: 065
     Dates: start: 20150813

REACTIONS (3)
  - Brain neoplasm malignant [Unknown]
  - Second primary malignancy [Unknown]
  - Memory impairment [Unknown]

NARRATIVE: CASE EVENT DATE: 20220808
